FAERS Safety Report 18341251 (Version 1)
Quarter: 2020Q4

REPORT INFORMATION
  Report Type: Spontaneous
  Country: GB (occurrence: GB)
  Receive Date: 20201003
  Receipt Date: 20201003
  Transmission Date: 20210113
  Serious: Yes (Hospitalization)
  Sender: FDA-Public Use
  Company Number: GB-TEVA-2020-GB-1833729

PATIENT
  Age: 50 Year
  Sex: Female
  Weight: 75.29 kg

DRUGS (2)
  1. NORTRIPTYLINE [Concomitant]
     Active Substance: NORTRIPTYLINE
  2. NAPROXEN. [Suspect]
     Active Substance: NAPROXEN
     Indication: SPINAL PAIN
     Dosage: 500 MG
     Route: 048
     Dates: start: 20200815, end: 20200817

REACTIONS (5)
  - Lip blister [Unknown]
  - Peripheral swelling [Unknown]
  - Blister [Recovered/Resolved]
  - Urticaria [Recovered/Resolved]
  - Heart rate increased [Recovered/Resolved]

NARRATIVE: CASE EVENT DATE: 20200816
